FAERS Safety Report 4429872-1 (Version None)
Quarter: 2004Q3

REPORT INFORMATION
  Report Type: 
  Country: None (occurrence: None)
  Receive Date: 20040816
  Receipt Date: 20040731
  Transmission Date: 20050211
  Serious: Yes (Hospitalization, Other)
  Sender: FDA-Public Use
  Company Number: 2004049909

PATIENT
  Age: 32 Year
  Sex: Male
  Weight: 69.5 kg

DRUGS (12)
  1. ZITHROMAX [Suspect]
     Indication: COUGH
     Dosage: 500 MG (500 MG, 1 IN 1 D), ORAL
     Route: 048
     Dates: start: 20040713
  2. ZITHROMAX [Suspect]
     Indication: MYALGIA
     Dosage: 500 MG (500 MG, 1 IN 1 D), ORAL
     Route: 048
     Dates: start: 20040713
  3. ZITHROMAX [Suspect]
     Indication: PYREXIA
     Dosage: 500 MG (500 MG, 1 IN 1 D), ORAL
     Route: 048
     Dates: start: 20040713
  4. ACETAMINOPHEN [Suspect]
     Indication: COUGH
     Dosage: 200 MG (200 MG, AS NEEDED), ORAL
     Route: 048
     Dates: start: 20040713, end: 20040713
  5. ACETAMINOPHEN [Suspect]
     Indication: MYALGIA
     Dosage: 200 MG (200 MG, AS NEEDED), ORAL
     Route: 048
     Dates: start: 20040713, end: 20040713
  6. ACETAMINOPHEN [Suspect]
     Indication: PYREXIA
     Dosage: 200 MG (200 MG, AS NEEDED), ORAL
     Route: 048
     Dates: start: 20040713, end: 20040713
  7. DEXTROMETHORPAM HYDROBROMIDE (DEXTROMETHORPAM HYDROBROMIDE) [Suspect]
     Indication: COUGH
     Dosage: 45 MG (15 MG, 3 IN 1 D), ORAL
     Route: 048
     Dates: start: 20040713, end: 20040713
  8. DEXTROMETHORPAM HYDROBROMIDE (DEXTROMETHORPAM HYDROBROMIDE) [Suspect]
     Indication: MYALGIA
     Dosage: 45 MG (15 MG, 3 IN 1 D), ORAL
     Route: 048
     Dates: start: 20040713, end: 20040713
  9. DEXTROMETHORPAM HYDROBROMIDE (DEXTROMETHORPAM HYDROBROMIDE) [Suspect]
     Indication: PYREXIA
     Dosage: 45 MG (15 MG, 3 IN 1 D), ORAL
     Route: 048
     Dates: start: 20040713, end: 20040713
  10. CARBOCISTEINE (CARBOCISTEINE) [Suspect]
     Indication: COUGH
     Dosage: 1500 MG (500 MG, 3 IN 1 D), ORAL
     Route: 048
     Dates: start: 20040713, end: 20040713
  11. CARBOCISTEINE (CARBOCISTEINE) [Suspect]
     Indication: MYALGIA
     Dosage: 1500 MG (500 MG, 3 IN 1 D), ORAL
     Route: 048
     Dates: start: 20040713, end: 20040713
  12. CARBOCISTEINE (CARBOCISTEINE) [Suspect]
     Indication: PYREXIA
     Dosage: 1500 MG (500 MG, 3 IN 1 D), ORAL
     Route: 048
     Dates: start: 20040713, end: 20040713

REACTIONS (5)
  - BLOOD CREATINE PHOSPHOKINASE INCREASED [None]
  - BLOOD LACTATE DEHYDROGENASE INCREASED [None]
  - COUGH [None]
  - MYALGIA [None]
  - PYREXIA [None]
